FAERS Safety Report 5095474-X (Version None)
Quarter: 2006Q3

REPORT INFORMATION
  Report Type: 
  Country: None (occurrence: None)
  Receive Date: 20060901
  Receipt Date: 20060901
  Transmission Date: 20061208
  Serious: Yes (Life-Threatening, Other)
  Sender: FDA-Public Use
  Company Number: None

PATIENT
  Age: 85 Year
  Sex: Male
  Weight: 77.8 kg

DRUGS (10)
  1. AMARYL [Suspect]
     Indication: DIABETES MELLITUS
     Dosage: 4 MG DAILY PO [1 DOSE]
     Route: 048
     Dates: start: 20060526
  2. AMARYL [Suspect]
     Indication: DIABETES MELLITUS
     Dosage: 2 MG DAILY PO [2 DOSES]
     Route: 048
     Dates: start: 20060527, end: 20060528
  3. CARVEDILOL [Concomitant]
  4. LISINOPRIL [Concomitant]
  5. LORAZEPAM [Concomitant]
  6. HEPARIN [Concomitant]
  7. K-DUR 10 [Concomitant]
  8. LEVOTHYROXIN [Concomitant]
  9. METOLOZONE [Concomitant]
  10. PROTONIX [Concomitant]

REACTIONS (2)
  - HEPATIC NEOPLASM MALIGNANT [None]
  - HYPOGLYCAEMIA [None]
